FAERS Safety Report 8164747 (Version 5)
Quarter: 2016Q2

REPORT INFORMATION
  Report Type: Spontaneous
  Country: US (occurrence: US)
  Receive Date: 20110930
  Receipt Date: 20160401
  Transmission Date: 20160815
  Serious: Yes (Other)
  Sender: FDA-Public Use
  Company Number: US-ASTRAZENECA-2010SE11941

PATIENT
  Age: 62 Year
  Sex: Female

DRUGS (6)
  1. SEROQUEL [Suspect]
     Active Substance: QUETIAPINE FUMARATE
     Indication: SLEEP DISORDER
     Route: 048
  2. SEROQUEL [Suspect]
     Active Substance: QUETIAPINE FUMARATE
     Indication: SLEEP DISORDER
     Route: 048
     Dates: start: 201001, end: 20100901
  3. NITRO PILLS [Concomitant]
     Active Substance: NITROGLYCERIN
  4. SEROQUEL [Suspect]
     Active Substance: QUETIAPINE FUMARATE
     Indication: SLEEP DISORDER
     Route: 048
  5. ASPIRIN. [Concomitant]
     Active Substance: ASPIRIN
  6. SEROQUEL [Suspect]
     Active Substance: QUETIAPINE FUMARATE
     Indication: SLEEP DISORDER
     Route: 048

REACTIONS (21)
  - Breast cancer female [Unknown]
  - Abdominal pain upper [Unknown]
  - Breast mass [Unknown]
  - Nasopharyngitis [Unknown]
  - Cough [Unknown]
  - Drug dose omission [Unknown]
  - Product use issue [Unknown]
  - Chest pain [Unknown]
  - Off label use [Unknown]
  - Nervousness [Unknown]
  - Insomnia [Unknown]
  - Retching [Unknown]
  - Arthralgia [Unknown]
  - Malaise [Unknown]
  - Poor quality sleep [Unknown]
  - Ear pain [Unknown]
  - Nausea [Unknown]
  - Influenza [Unknown]
  - Oropharyngeal pain [Unknown]
  - Tremor [Unknown]
  - Breast pain [Unknown]

NARRATIVE: CASE EVENT DATE: 2010
